FAERS Safety Report 11053021 (Version 2)
Quarter: 2015Q2

REPORT INFORMATION
  Report Type: Spontaneous
  Country: IN (occurrence: IN)
  Receive Date: 20150421
  Receipt Date: 20150429
  Transmission Date: 20150821
  Serious: Yes (Other)
  Sender: FDA-Public Use
  Company Number: IN-IMPAX LABORATORIES, INC-2015-IPXL-00410

PATIENT
  Age: 16 Month
  Sex: Female

DRUGS (2)
  1. TOPIRAMATE. [Suspect]
     Active Substance: TOPIRAMATE
     Indication: CONVULSION NEONATAL
     Dosage: 37.5 MG, DAILY
     Route: 065
  2. DIVALPROEX SODIUM ER [Suspect]
     Active Substance: DIVALPROEX SODIUM
     Indication: CONVULSION NEONATAL
     Dosage: 300 MG, DAILY
     Route: 065

REACTIONS (2)
  - Lactate pyruvate ratio increased [Recovered/Resolved]
  - Amino acid level increased [Recovered/Resolved]
